FAERS Safety Report 18867619 (Version 3)
Quarter: 2022Q3

REPORT INFORMATION
  Report Type: Spontaneous
  Country: CH (occurrence: CH)
  Receive Date: 20210209
  Receipt Date: 20220723
  Transmission Date: 20221027
  Serious: Yes (Disabling)
  Sender: FDA-Public Use
  Company Number: None

PATIENT
  Age: 42 Year
  Sex: Male

DRUGS (19)
  1. HALOPERIDOL DECANOATE [Suspect]
     Active Substance: HALOPERIDOL DECANOATE
     Indication: Product used for unknown indication
     Route: 030
     Dates: start: 20200618, end: 20201211
  2. FLUOXETINE [Concomitant]
     Active Substance: FLUOXETINE HYDROCHLORIDE
  3. FLURAZEPAM HYDROCHLORIDE [Concomitant]
     Active Substance: FLURAZEPAM HYDROCHLORIDE
  4. REMERON [Concomitant]
     Active Substance: MIRTAZAPINE
  5. LORAZEPAM [Concomitant]
     Active Substance: LORAZEPAM
     Dosage: AS NECESSARY
  6. MORPHINE SULFATE [Concomitant]
     Active Substance: MORPHINE SULFATE
  7. MORPHINE [Concomitant]
     Active Substance: MORPHINE
  8. DAFALGAN [Concomitant]
     Active Substance: ACETAMINOPHEN
  9. TIZANIDINE [Concomitant]
     Active Substance: TIZANIDINE
  10. CHOLECALCIFEROL [Concomitant]
     Active Substance: CHOLECALCIFEROL
  11. AMOROLFINE HYDROCHLORIDE [Concomitant]
     Active Substance: AMOROLFINE HYDROCHLORIDE
  12. DICLOFENAC EPOLAMINE [Concomitant]
     Active Substance: DICLOFENAC EPOLAMINE
     Dosage: AS NECESSARY
  13. FORTALIS BALSAM [Concomitant]
     Dosage: AS NECESSARY
  14. AKINETON [Concomitant]
     Active Substance: BIPERIDEN HYDROCHLORIDE
     Dosage: AS NECESSARY
  15. BEPANTHENE PLUS [Concomitant]
     Dosage: AS NECESSARY
  16. NIZORAL [Concomitant]
     Active Substance: KETOCONAZOLE
     Dosage: AS NECESSARY
  17. GLYCERIN\MINERAL OIL\PETROLATUM [Concomitant]
     Active Substance: GLYCERIN\MINERAL OIL\PETROLATUM
     Dosage: AS NECESSARY
  18. MOVICOL [Concomitant]
     Active Substance: POLYETHYLENE GLYCOL 3350\POTASSIUM CHLORIDE\SODIUM BICARBONATE\SODIUM CHLORIDE
     Dosage: AS NECESSARY
  19. SODIUM PICOSULFATE [Concomitant]
     Active Substance: SODIUM PICOSULFATE
     Dosage: AS NECESSARY

REACTIONS (3)
  - Amnestic disorder [Recovered/Resolved]
  - Asthenia [Unknown]
  - Insomnia [Unknown]

NARRATIVE: CASE EVENT DATE: 20200601
